FAERS Safety Report 8615680-4 (Version None)
Quarter: 2012Q3

REPORT INFORMATION
  Report Type: 
  Country: None (occurrence: None)
  Receive Date: 20120823
  Receipt Date: 20120813
  Transmission Date: 20120928
  Serious: Yes (Other)
  Sender: FDA-Public Use
  Company Number: US-WATSON-2012-14329

PATIENT
  Age: 58 Year
  Sex: Female

DRUGS (1)
  1. INFED [Suspect]
     Indication: ANAEMIA
     Dosage: 25 MG TEST DOSE AND PATIENT RECEIVED APPROX. 12.5 MG
     Route: 042
     Dates: start: 20120726

REACTIONS (8)
  - COUGH [None]
  - BLOOD PRESSURE INCREASED [None]
  - FLUSHING [None]
  - THROAT IRRITATION [None]
  - HEART RATE INCREASED [None]
  - PHARYNGEAL OEDEMA [None]
  - HYPERHIDROSIS [None]
  - HYPERSENSITIVITY [None]
